FAERS Safety Report 18096988 (Version 1)
Quarter: 2020Q3

REPORT INFORMATION
  Report Type: Spontaneous
  Country: US (occurrence: US)
  Receive Date: 20200730
  Receipt Date: 20200730
  Transmission Date: 20201103
  Serious: No
  Sender: FDA-Public Use
  Company Number: NVSC2020US209241

PATIENT
  Sex: Female

DRUGS (2)
  1. ESTRADIOL. [Suspect]
     Active Substance: ESTRADIOL
     Indication: PRODUCT USED FOR UNKNOWN INDICATION
     Dosage: 0.05 MG, QW
     Route: 065
  2. LISINOPRIL. [Concomitant]
     Active Substance: LISINOPRIL
     Indication: PRODUCT USED FOR UNKNOWN INDICATION
     Route: 065

REACTIONS (8)
  - Skin abrasion [Unknown]
  - Skin irritation [Unknown]
  - Scab [Unknown]
  - Product adhesion issue [Unknown]
  - Application site pain [Unknown]
  - Application site pruritus [Unknown]
  - Application site rash [Unknown]
  - Urticaria [Unknown]
